FAERS Safety Report 18575077 (Version 2)
Quarter: 2021Q4

REPORT INFORMATION
  Report Type: Report from Study
  Country: DE (occurrence: DE)
  Receive Date: 20201203
  Receipt Date: 20211103
  Transmission Date: 20220303
  Serious: Yes (Hospitalization)
  Sender: FDA-Public Use
  Company Number: DE-NOVARTISPH-NVSC2020DE321951

PATIENT
  Sex: Male

DRUGS (6)
  1. COSENTYX [Suspect]
     Active Substance: SECUKINUMAB
     Indication: Axial spondyloarthritis
     Dosage: 150 MG, UNKNOWN
     Route: 065
     Dates: start: 20181106, end: 20190401
  2. INFLIXIMAB [Suspect]
     Active Substance: INFLIXIMAB
     Indication: Product used for unknown indication
     Dosage: 600 MG, UNKNOWN
     Route: 065
     Dates: start: 20190426, end: 20191030
  3. INFLIXIMAB [Suspect]
     Active Substance: INFLIXIMAB
     Dosage: 500 MG, UNKNOWN
     Route: 065
     Dates: start: 20200207, end: 20200207
  4. CELECOXIB [Concomitant]
     Active Substance: CELECOXIB
     Indication: Product used for unknown indication
     Dosage: 200 MG, UNKNOWN
     Route: 065
     Dates: start: 20180405, end: 20190422
  5. CELECOXIB [Concomitant]
     Active Substance: CELECOXIB
     Dosage: 200 MG, UNKNOWN
     Route: 065
     Dates: start: 20190905, end: 20200215
  6. ACEMETACIN [Concomitant]
     Active Substance: ACEMETACIN
     Indication: Product used for unknown indication
     Dosage: 60 MG, UNKNOWN
     Route: 065
     Dates: start: 20200511

REACTIONS (1)
  - Coronary artery disease [Unknown]

NARRATIVE: CASE EVENT DATE: 20200303
